FAERS Safety Report 6711192-3 (Version None)
Quarter: 2010Q2

REPORT INFORMATION
  Report Type: 
  Country: None (occurrence: None)
  Receive Date: 20100429
  Receipt Date: 20090609
  Transmission Date: 20101027
  Serious: Yes (Other)
  Sender: FDA-Public Use
  Company Number: 2009PV038756

PATIENT
  Age: 21 Year
  Sex: Male
  Weight: 26.2 kg

DRUGS (2)
  1. SYMLIN [Suspect]
     Indication: TYPE 1 DIABETES MELLITUS
     Dosage: 3 MCG;QH;PUMP
     Dates: start: 20061121, end: 20061122
  2. HUMALOG (CON.) [Concomitant]

REACTIONS (1)
  - HYPOGLYCAEMIA [None]
